FAERS Safety Report 9208022 (Version 4)
Quarter: 2013Q2

REPORT INFORMATION
  Report Type: Spontaneous
  Country: BR (occurrence: BR)
  Receive Date: 20130403
  Receipt Date: 20130620
  Transmission Date: 20140414
  Serious: Yes (Death, Hospitalization, Other)
  Sender: FDA-Public Use
  Company Number: PHHY2013BR031269

PATIENT
  Age: 80 Year
  Sex: Male
  Weight: 52 kg

DRUGS (1)
  1. BUFFERIN [Suspect]
     Indication: CARDIAC DISORDER

REACTIONS (9)
  - Death [Fatal]
  - Hypotension [Not Recovered/Not Resolved]
  - Pleural effusion [Unknown]
  - Heart rate abnormal [Not Recovered/Not Resolved]
  - Organ failure [Not Recovered/Not Resolved]
  - Swelling [Recovered/Resolved]
  - Breast enlargement [Recovered/Resolved]
  - Liver disorder [Not Recovered/Not Resolved]
  - Drug ineffective [Unknown]
